FAERS Safety Report 10890073 (Version 6)
Quarter: 2015Q3

REPORT INFORMATION
  Report Type: Report from Study
  Country: US (occurrence: US)
  Receive Date: 20150305
  Receipt Date: 20150819
  Transmission Date: 20151125
  Serious: Yes (Other)
  Sender: FDA-Public Use
  Company Number: US-AMGEN-USASP2015020155

PATIENT
  Age: 63 Year
  Sex: Male

DRUGS (1)
  1. ENBREL [Suspect]
     Active Substance: ETANERCEPT
     Indication: RHEUMATOID ARTHRITIS
     Dosage: 25 MG, 2 TIMES/WK
     Route: 065
     Dates: start: 20100615, end: 201501

REACTIONS (4)
  - Pneumonia [Recovered/Resolved]
  - Bronchitis [Recovered/Resolved]
  - Rift Valley fever [Unknown]
  - Malaise [Unknown]

NARRATIVE: CASE EVENT DATE: 2013
